FAERS Safety Report 7481037-5 (Version None)
Quarter: 2011Q2

REPORT INFORMATION
  Report Type: 
  Country: None (occurrence: None)
  Receive Date: 20110516
  Receipt Date: 20100116
  Transmission Date: 20111010
  Serious: Yes (Death, Other)
  Sender: FDA-Public Use
  Company Number: US-BAYER-201011179NA

PATIENT
  Age: 54 Year
  Sex: Female
  Weight: 72.562 kg

DRUGS (18)
  1. ETOMIDATE [Concomitant]
     Dosage: UNK
     Route: 042
     Dates: start: 20010502
  2. ANCEF [Concomitant]
     Dosage: UNK
     Dates: start: 20010502
  3. EPINEPHRINE [Concomitant]
     Dosage: MICROGRAMS/MINUTE TITRATED
     Route: 042
     Dates: start: 20010502
  4. TENORMIN [Concomitant]
     Dosage: 50 MG, QD
     Route: 048
  5. HEPARIN [Concomitant]
     Dosage: 5000 UNITS
     Route: 042
     Dates: start: 20010502
  6. NITROGLYCERIN [Concomitant]
     Dosage: MICROGRAMS/MINUTE TITRATED
     Route: 042
     Dates: start: 20010502
  7. TRASYLOL [Suspect]
     Indication: CORONARY ARTERY BYPASS
     Dosage: UNK
     Dates: start: 20010428
  8. ZAROXOLYN [Concomitant]
     Dosage: 10 MG, QD
     Route: 048
  9. ZOCOR [Concomitant]
     Dosage: 20 MG @ HOUR OF SLEEP
     Route: 048
  10. HEPARIN [Concomitant]
     Dosage: 20,000 UNITS IN CELL SAVER
     Route: 042
     Dates: start: 20010502
  11. HEPARIN [Concomitant]
     Dosage: 30K UNITS
     Route: 042
     Dates: start: 20010502
  12. PROTAMINE SULFATE [Concomitant]
     Dosage: 250 MG
     Route: 042
     Dates: start: 20010502
  13. ACETYLSALICYLIC ACID SRT [Concomitant]
     Dosage: 81 MG, QD
     Route: 048
  14. PROTAMINE SULFATE [Concomitant]
     Dosage: 50 MG
     Route: 042
     Dates: start: 20010502
  15. RED BLOOD CELLS, CONCENTRATED [Concomitant]
     Dosage: UNK
     Dates: start: 20010502
  16. CYCLOSPORINE [Concomitant]
  17. LASIX [Concomitant]
     Dosage: UNK
     Route: 042
     Dates: start: 20010502
  18. HESPAN IN EXCEL PLASTIC CONTAINER [Concomitant]
     Dosage: 500 ML, UNK
     Route: 042
     Dates: start: 20010502

REACTIONS (15)
  - PAIN [None]
  - ANXIETY [None]
  - UNEVALUABLE EVENT [None]
  - FEAR [None]
  - CEREBROVASCULAR ACCIDENT [None]
  - RENAL IMPAIRMENT [None]
  - CARDIAC DISORDER [None]
  - DEATH [None]
  - ORGAN FAILURE [None]
  - ANHEDONIA [None]
  - RENAL FAILURE [None]
  - MYOCARDIAL INFARCTION [None]
  - INJURY [None]
  - RENAL INJURY [None]
  - DEPRESSION [None]
